FAERS Safety Report 23069098 (Version 1)
Quarter: 2023Q4

REPORT INFORMATION
  Report Type: Spontaneous
  Country: BR (occurrence: BR)
  Receive Date: 20231016
  Receipt Date: 20231016
  Transmission Date: 20240110
  Serious: Yes (Other)
  Sender: FDA-Public Use
  Company Number: BR-002147023-NVSC2023BR221504

PATIENT
  Sex: Male

DRUGS (1)
  1. VOTRIENT [Suspect]
     Active Substance: PAZOPANIB HYDROCHLORIDE
     Indication: Product used for unknown indication
     Dosage: 400 MG (FOR ABOUT A YEAR)
     Route: 065

REACTIONS (11)
  - Haematochezia [Unknown]
  - Ageusia [Unknown]
  - Faeces discoloured [Unknown]
  - Gastric ulcer [Unknown]
  - Blood glucose increased [Unknown]
  - Alopecia [Unknown]
  - Dysphonia [Unknown]
  - Diarrhoea [Unknown]
  - Weight decreased [Unknown]
  - Hypertension [Unknown]
  - Product availability issue [Unknown]
